FAERS Safety Report 11916819 (Version 1)
Quarter: 2016Q1

REPORT INFORMATION
  Report Type: Spontaneous
  Country: US (occurrence: US)
  Receive Date: 20160114
  Receipt Date: 20160114
  Transmission Date: 20160526
  Serious: No
  Sender: FDA-Public Use
  Company Number: US-PFIZER INC-2015453371

PATIENT
  Age: 71 Year
  Sex: Female

DRUGS (1)
  1. AMLODIPINE BESILATE [Suspect]
     Active Substance: AMLODIPINE BESYLATE
     Indication: RAYNAUD^S PHENOMENON
     Dosage: 20 MG, 1X/DAY (10 MG TABLET X 2 TABLET DAILY)
     Route: 048

REACTIONS (8)
  - Hypoaesthesia [Unknown]
  - Paraesthesia [Unknown]
  - Pain in extremity [Unknown]
  - Neck pain [Unknown]
  - Condition aggravated [Unknown]
  - Peripheral ischaemia [Unknown]
  - Product use issue [Unknown]
  - Musculoskeletal pain [Unknown]
